FAERS Safety Report 5397150-2 (Version None)
Quarter: 2007Q3

REPORT INFORMATION
  Report Type: 
  Country: None (occurrence: None)
  Receive Date: 20070723
  Receipt Date: 20070706
  Transmission Date: 20080115
  Serious: Yes (Disabling)
  Sender: FDA-Public Use
  Company Number: 2007S1000094

PATIENT
  Age: 61 Year
  Sex: Female

DRUGS (2)
  1. CUBICIN [Suspect]
     Indication: ARTHRITIS INFECTIVE
     Dosage: 6 MG/KG;Q24H;
  2. LEVOFLOXACIN [Concomitant]

REACTIONS (9)
  - AMPUTATION [None]
  - DECUBITUS ULCER [None]
  - FRACTURE [None]
  - HIP DISARTICULATION [None]
  - POST PROCEDURAL COMPLICATION [None]
  - SKIN ULCER [None]
  - TREATMENT NONCOMPLIANCE [None]
  - WOUND DEHISCENCE [None]
  - WOUND DRAINAGE [None]
